FAERS Safety Report 4423224-6 (Version None)
Quarter: 2004Q3

REPORT INFORMATION
  Report Type: 
  Country: None (occurrence: None)
  Receive Date: 20040809
  Receipt Date: 20040727
  Transmission Date: 20050211
  Serious: Yes (Other)
  Sender: FDA-Public Use
  Company Number: 2004042368

PATIENT
  Age: 73 Year
  Sex: Male
  Weight: 75 kg

DRUGS (4)
  1. ATORVASTATIN CALCIUM [Suspect]
     Indication: CEREBROVASCULAR ACCIDENT
     Dosage: 10 MG (1 IN 1 D), ORAL
     Route: 048
     Dates: start: 20031114, end: 20031210
  2. ACETYLSALICYLIC ACID SRT [Concomitant]
  3. RAMIPRIL [Concomitant]
  4. SERETIDE MITE (FLUTICASONE PROPIONATE, SALMETEROL, XINAFOATE) [Concomitant]

REACTIONS (2)
  - CEREBROVASCULAR ACCIDENT [None]
  - HEPATITIS [None]
